FAERS Safety Report 9016063 (Version 2)
Quarter: 2013Q1

REPORT INFORMATION
  Report Type: Report from Study
  Country: US (occurrence: US)
  Receive Date: 20130116
  Receipt Date: 20130128
  Transmission Date: 20140127
  Serious: Yes (Hospitalization, Other)
  Sender: FDA-Public Use
  Company Number: US-ACTELION-A-US2013-77792

PATIENT
  Age: 64 Year
  Sex: Female

DRUGS (4)
  1. VENTAVIS [Suspect]
     Indication: PULMONARY ARTERIAL HYPERTENSION
     Dosage: UNK
     Route: 055
  2. SILDENAFIL [Concomitant]
  3. LETAIRIS [Concomitant]
  4. PLAVIX [Concomitant]

REACTIONS (3)
  - Toe amputation [Recovering/Resolving]
  - Arteriosclerosis [Recovering/Resolving]
  - Influenza [Unknown]
